FAERS Safety Report 4680264-X (Version None)
Quarter: 2005Q2

REPORT INFORMATION
  Report Type: 
  Country: None (occurrence: None)
  Receive Date: 20050601
  Receipt Date: 20050519
  Transmission Date: 20051028
  Serious: Yes (Other)
  Sender: FDA-Public Use
  Company Number: HQWYE649111MAY05

PATIENT
  Age: 58 Year
  Sex: Male

DRUGS (8)
  1. MINOCYCLINE HCL [Suspect]
     Indication: CRYPTOGENIC ORGANIZING PNEUMONIA
     Dosage: 200 MG DAILY ORAL
     Route: 048
     Dates: start: 20050329, end: 20050404
  2. CEFAZOLIN SODIUM [Suspect]
     Indication: CRYPTOGENIC ORGANIZING PNEUMONIA
     Dosage: INTRAVENOUS
     Route: 042
     Dates: start: 20050329, end: 20050405
  3. RHEUMATREX [Suspect]
     Indication: RHEUMATOID ARTHRITIS
     Dosage: 2 MG DAILY, ORAL
     Route: 048
     Dates: start: 20040101, end: 20050331
  4. AZULFIDINE [Concomitant]
  5. PREDNISOLONE [Concomitant]
  6. MOBIC [Concomitant]
  7. FOLIC ACID [Concomitant]
  8. ASTROFEN (CIMETIDINE) [Concomitant]

REACTIONS (2)
  - CRYPTOGENIC ORGANIZING PNEUMONIA [None]
  - DISEASE PROGRESSION [None]
